FAERS Safety Report 7395184-X (Version None)
Quarter: 2011Q2

REPORT INFORMATION
  Report Type: 
  Country: None (occurrence: None)
  Receive Date: 20110405
  Receipt Date: 20110328
  Transmission Date: 20111010
  Serious: Yes (Hospitalization, Other)
  Sender: FDA-Public Use
  Company Number: IT-GENZYME-POMP-1001444

PATIENT

DRUGS (1)
  1. MYOZYME [Suspect]
     Indication: GLYCOGEN STORAGE DISEASE TYPE II
     Route: 042

REACTIONS (9)
  - IMPAIRED GASTRIC EMPTYING [None]
  - HYPERCAPNIA [None]
  - RESPIRATORY DISTRESS [None]
  - MULTI-ORGAN FAILURE [None]
  - SEPSIS [None]
  - CHRONIC OBSTRUCTIVE PULMONARY DISEASE [None]
  - SLEEP APNOEA SYNDROME [None]
  - GASTRIC ANTRAL VASCULAR ECTASIA [None]
  - ASTHMA [None]
